FAERS Safety Report 23630955 (Version 1)
Quarter: 2024Q1

REPORT INFORMATION
  Report Type: Spontaneous
  Country: GB (occurrence: GB)
  Receive Date: 20240314
  Receipt Date: 20240314
  Transmission Date: 20240410
  Serious: Yes (Disabling, Other)
  Sender: FDA-Public Use
  Company Number: None

PATIENT
  Age: 37 Year
  Sex: Female
  Weight: 39 kg

DRUGS (2)
  1. PAROXETINE [Suspect]
     Active Substance: PAROXETINE
     Indication: Anxiety
     Dosage: 60 MG, ONCE PER DAY
     Route: 065
     Dates: start: 2014, end: 20220310
  2. QUETIAPINE [Concomitant]
     Active Substance: QUETIAPINE
     Indication: Insomnia
     Dosage: UNK, UNK
     Route: 065
     Dates: start: 2014

REACTIONS (14)
  - Suicidal ideation [Recovered/Resolved with Sequelae]
  - Hypomania [Recovered/Resolved]
  - Paraesthesia [Not Recovered/Not Resolved]
  - Halo vision [Recovered/Resolved]
  - Tremor [Not Recovered/Not Resolved]
  - Dizziness [Not Recovered/Not Resolved]
  - Heavy menstrual bleeding [Not Recovered/Not Resolved]
  - Fatigue [Not Recovered/Not Resolved]
  - Weight decreased [Not Recovered/Not Resolved]
  - Alopecia [Not Recovered/Not Resolved]
  - Panic attack [Not Recovered/Not Resolved]
  - Body temperature [Not Recovered/Not Resolved]
  - Electric shock sensation [Recovering/Resolving]
  - Palpitations [Not Recovered/Not Resolved]

NARRATIVE: CASE EVENT DATE: 20220108
